FAERS Safety Report 4382034-9 (Version None)
Quarter: 2004Q2

REPORT INFORMATION
  Report Type: 
  Country: None (occurrence: None)
  Receive Date: 20040603
  Receipt Date: 20030506
  Transmission Date: 20050107
  Serious: Yes (Other)
  Sender: FDA-Public Use
  Company Number: 200313961US

PATIENT
  Age: 18 Year
  Sex: Male

DRUGS (22)
  1. LOVENOX [Suspect]
     Indication: DEEP VEIN THROMBOSIS
     Dosage: 130 MG BID
     Dates: start: 20030404, end: 20030410
  2. HEPARIN [Suspect]
     Indication: EMBOLISM VENOUS
     Dates: start: 20030402, end: 20030404
  3. FENTANYL [Concomitant]
  4. LORAZEPAM [Concomitant]
  5. PANTOPRAZOLE SODIUM [Concomitant]
  6. DEXAMETHASONE [Concomitant]
  7. METOCLOPRAMIDE [Concomitant]
  8. AZITHROMYCIN [Concomitant]
  9. CEFTRIAXONE [Concomitant]
  10. PROPOFOL [Concomitant]
  11. MORPHINE [Concomitant]
  12. MAGNESIUM SULFATE [Concomitant]
  13. DOXYCYCLINE [Concomitant]
  14. LEVOFLOXACIN [Concomitant]
  15. IPRATROPIUM BROMIDE [Concomitant]
  16. ALBUTEROL [Concomitant]
  17. IMIPENEM [Concomitant]
  18. MIDAZOLAM HCL [Concomitant]
  19. VECURONIUM BROMIDE [Concomitant]
  20. HALOPERIDOL [Concomitant]
  21. PREDNISONE [Concomitant]
  22. FAMOTIDINE [Concomitant]

REACTIONS (3)
  - ANGIONEUROTIC OEDEMA [None]
  - GLOSSITIS [None]
  - SWELLING FACE [None]
